FAERS Safety Report 5819686-X (Version None)
Quarter: 2008Q3

REPORT INFORMATION
  Report Type: 
  Country: None (occurrence: None)
  Receive Date: 20080723
  Receipt Date: 20080711
  Transmission Date: 20090109
  Serious: Yes (Other)
  Sender: FDA-Public Use
  Company Number: FR-PFIZER INC-2008033577

PATIENT
  Sex: Female
  Weight: 78.5 kg

DRUGS (9)
  1. LYRICA [Suspect]
     Indication: POLYNEUROPATHY
     Route: 048
  2. LYRICA [Suspect]
     Indication: NEURALGIA
  3. TRAMADOL HCL [Suspect]
     Indication: PAIN
     Dosage: DAILY DOSE:100MG
  4. THIAMINE [Concomitant]
  5. ESOMEPRAZOLE MAGNESIUM [Concomitant]
     Indication: OESOPHAGITIS
     Route: 048
  6. LEVETIRACETAM [Concomitant]
     Indication: EPILEPSY
  7. HYDROXYZINE [Concomitant]
     Indication: INSOMNIA
  8. ACETAMINOPHEN [Concomitant]
     Indication: PAIN
  9. PYRIDOXINE HYDROCHLORIDE [Concomitant]

REACTIONS (2)
  - CHOLESTASIS [None]
  - CYTOLYTIC HEPATITIS [None]
